FAERS Safety Report 19075825 (Version 1)
Quarter: 2021Q1

REPORT INFORMATION
  Report Type: Spontaneous
  Country: CH (occurrence: CH)
  Receive Date: 20210330
  Receipt Date: 20210330
  Transmission Date: 20210420
  Serious: Yes (Life-Threatening, Other)
  Sender: FDA-Public Use
  Company Number: CH-GILEAD-2021-0513848

PATIENT
  Sex: Male
  Weight: 100 kg

DRUGS (2)
  1. RIBAVIRINE [Suspect]
     Active Substance: RIBAVIRIN
     Indication: CHRONIC HEPATITIS C
     Dosage: UNK
     Route: 065
     Dates: start: 2015
  2. SOVALDI [Suspect]
     Active Substance: SOFOSBUVIR
     Indication: CHRONIC HEPATITIS C
     Dosage: UNK
     Route: 065
     Dates: start: 2015

REACTIONS (2)
  - Drug resistance [Not Recovered/Not Resolved]
  - Drug ineffective [Not Recovered/Not Resolved]
